FAERS Safety Report 12976190 (Version 3)
Quarter: 2018Q2

REPORT INFORMATION
  Report Type: Spontaneous
  Country: JP (occurrence: JP)
  Receive Date: 20161126
  Receipt Date: 20180406
  Transmission Date: 20180711
  Serious: Yes (Other)
  Sender: FDA-Public Use
  Company Number: JP-AMGEN-JPNSP2016167870

PATIENT
  Age: 66 Year
  Sex: Female
  Weight: 48 kg

DRUGS (11)
  1. PREDNISOLONE. [Concomitant]
     Active Substance: PREDNISOLONE
     Indication: RHEUMATOID ARTHRITIS
     Dosage: 2.5 MG, QD
     Route: 048
  2. EDIROL [Concomitant]
     Active Substance: ELDECALCITOL
     Indication: RHEUMATOID ARTHRITIS
     Dosage: 0.75 MG, QD
     Route: 048
  3. FOLIAMIN [Concomitant]
     Active Substance: FOLIC ACID
     Indication: RHEUMATOID ARTHRITIS
     Dosage: 5 MG, QD (ONCE PER WEEK)
     Route: 048
  4. METHOTREXATE. [Concomitant]
     Active Substance: METHOTREXATE
     Dosage: 2 MG, QD, (ONCE PER WEEK)
     Route: 048
  5. PRALIA [Suspect]
     Active Substance: DENOSUMAB
     Indication: OSTEOPOROSIS
     Dosage: 60 MG, Q6MO
     Route: 058
     Dates: start: 20160301, end: 20160301
  6. METHOTREXATE. [Concomitant]
     Active Substance: METHOTREXATE
     Indication: RHEUMATOID ARTHRITIS
     Dosage: 2 MG, QD
     Route: 048
  7. METHOTREXATE. [Concomitant]
     Active Substance: METHOTREXATE
     Dosage: 6 MG, QWK (BID-QD)
     Route: 048
  8. AMLODIPINE [Concomitant]
     Active Substance: AMLODIPINE BESYLATE
     Indication: HYPERTENSION
     Dosage: 2.5 MG, QD
     Route: 048
  9. FAMOTIDINE. [Concomitant]
     Active Substance: FAMOTIDINE
     Indication: RHEUMATOID ARTHRITIS
     Dosage: 20 MG, QD
     Route: 048
  10. FAMOTIDINE. [Concomitant]
     Active Substance: FAMOTIDINE
     Indication: ADVERSE REACTION
  11. EDIROL [Concomitant]
     Active Substance: ELDECALCITOL
     Indication: ADVERSE REACTION

REACTIONS (1)
  - Glomerulonephritis membranous [Recovering/Resolving]

NARRATIVE: CASE EVENT DATE: 20160623
